FAERS Safety Report 9105687 (Version 2)
Quarter: 2013Q2

REPORT INFORMATION
  Report Type: Spontaneous
  Country: DE (occurrence: DE)
  Receive Date: 20130220
  Receipt Date: 20130501
  Transmission Date: 20140414
  Serious: Yes (Death, Hospitalization)
  Sender: FDA-Public Use
  Company Number: DE-MPIJNJ-2013-01355

PATIENT
  Sex: 0

DRUGS (2)
  1. VELCADE [Suspect]
     Indication: PLASMA CELL MYELOMA
     Dosage: 1.2 MG/M2, CYCLIC
     Route: 042
     Dates: start: 201102, end: 201110
  2. DEXAMETHASONE [Concomitant]

REACTIONS (1)
  - Polyneuropathy [Fatal]
